FAERS Safety Report 4616594-7 (Version None)
Quarter: 2005Q1

REPORT INFORMATION
  Report Type: 
  Country: None (occurrence: None)
  Receive Date: 20050318
  Receipt Date: 20050303
  Transmission Date: 20050727
  Serious: Yes (Life-Threatening, Hospitalization, Other)
  Sender: FDA-Public Use
  Company Number: 2005-00266

PATIENT
  Age: 59 Year
  Sex: Male
  Weight: 78 kg

DRUGS (25)
  1. VELCADE [Suspect]
     Indication: MULTIPLE MYELOMA
     Dosage: 1.30 MG/M2, IV BOLUS
     Route: 040
     Dates: start: 20050211, end: 20050211
  2. ACETAMINOPHEN [Concomitant]
  3. AEROCHAMBER INHALATION INHALER [Concomitant]
  4. COMBIVENT (SALBUTAMOL) INHALER [Concomitant]
  5. AMMONIUM LACTATE (AMMONIUM LACTATE) LOTION [Concomitant]
  6. ARTIFICIAL TEARS SOLUTION [Concomitant]
  7. BISACODYL (BISACODYL) SUPPOSITORY [Concomitant]
  8. CALCIUM CARBONATE (CALCIUM CARBONATE) TABLET [Concomitant]
  9. CAMPHOR (CAMPHOR) LOTION [Concomitant]
  10. CHLORHXIDINE GLUCONATE (CHLORHEXIDINE GLUCONATE) MOUTHWASH [Concomitant]
  11. DOCUSATE (DOCUSATE) CAPSULE [Concomitant]
  12. DOXYCYCLINE (DOXYCYCLINE) CAPSULE [Concomitant]
  13. EPOETIN ALFA (EPOETIN ALFA) [Concomitant]
  14. FLUOCINONIDE (FLUOCINONIDE) OINTMENT, CREAM [Concomitant]
  15. FUROSEMIDE [Concomitant]
  16. METOPROLOL TARTRATE [Concomitant]
  17. NEPHRO-VITE RX (ASCORBIC ACID, VITAMIN B  NOS, FOLIC ACID) TALET [Concomitant]
  18. NIFEDIPINE (NIFEDIPINE) TABLET [Concomitant]
  19. OMEPRAZOLE (OMEPRAZOLE) CAPSULE [Concomitant]
  20. OXYCODONE (OXYCODONE) TABLET [Concomitant]
  21. SENNA (SENNA) TABLET [Concomitant]
  22. SEVELAMER (SEVELAMER) TABLET [Concomitant]
  23. TEMAZEPAM (TEMAZEPAM) CAPSULE [Concomitant]
  24. TRAZODONE HCL [Concomitant]
  25. HYDROXYZINE PAMOATE (HYDROXYZINE EMBONATE) CAPSULE [Concomitant]

REACTIONS (29)
  - ABDOMINAL PAIN UPPER [None]
  - BLOOD MAGNESIUM INCREASED [None]
  - DEEP VEIN THROMBOSIS [None]
  - DELIRIUM [None]
  - ELECTROLYTE IMBALANCE [None]
  - EPISTAXIS [None]
  - HAEMATEMESIS [None]
  - HAEMATOCRIT DECREASED [None]
  - HAEMOGLOBIN DECREASED [None]
  - HAEMOPTYSIS [None]
  - HEPATOMEGALY [None]
  - INTERNATIONAL NORMALISED RATIO DECREASED [None]
  - KIDNEY INFECTION [None]
  - MENTAL IMPAIRMENT [None]
  - MENTAL STATUS CHANGES [None]
  - METABOLIC ALKALOSIS [None]
  - NAUSEA [None]
  - PLATELET COUNT DECREASED [None]
  - PLEURAL EFFUSION [None]
  - PROTHROMBIN TIME PROLONGED [None]
  - PYREXIA [None]
  - RENAL CYST [None]
  - RENAL NEOPLASM [None]
  - RESPIRATORY ALKALOSIS [None]
  - SUBDURAL HAEMATOMA [None]
  - THROMBOSIS [None]
  - VENA CAVA THROMBOSIS [None]
  - VENOUS OCCLUSION [None]
  - VOMITING [None]
